FAERS Safety Report 13217484 (Version 1)
Quarter: 2017Q1

REPORT INFORMATION
  Report Type: Other
  Country: US (occurrence: US)
  Receive Date: 20170210
  Receipt Date: 20170210
  Transmission Date: 20170428
  Serious: No
  Sender: FDA-Public Use
  Company Number: US-ACORDA-ACO_124593_2016

PATIENT
  Sex: Male
  Weight: 146.94 kg

DRUGS (2)
  1. AMPYRA [Suspect]
     Active Substance: DALFAMPRIDINE
     Indication: GAIT DISTURBANCE
     Dosage: 10 MG, BID
     Route: 048
  2. AVONEX [Concomitant]
     Active Substance: INTERFERON BETA-1A
     Indication: MULTIPLE SCLEROSIS
     Dosage: 1 SHOT, WEEKLY
     Route: 051

REACTIONS (4)
  - Fall [Recovered/Resolved]
  - Contusion [Recovered/Resolved]
  - Fall [Unknown]
  - Balance disorder [Recovered/Resolved]
